FAERS Safety Report 4344455-X (Version None)
Quarter: 2004Q2

REPORT INFORMATION
  Report Type: 
  Country: None (occurrence: None)
  Receive Date: 20040422
  Receipt Date: 20040414
  Transmission Date: 20050107
  Serious: Yes (Death, Other)
  Sender: FDA-Public Use
  Company Number: PHBS2004US05126

PATIENT
  Age: 59 Year
  Sex: Female

DRUGS (3)
  1. CYCLOSPORINE [Suspect]
     Indication: HEART TRANSPLANT
     Route: 065
  2. MYCOPHENOLIC ACID [Suspect]
     Indication: HEART TRANSPLANT
     Route: 065
  3. PREDNISONE [Suspect]
     Indication: HEART TRANSPLANT
     Route: 065

REACTIONS (4)
  - CYTOMEGALOVIRUS CHORIORETINITIS [None]
  - DIABETES MELLITUS NON-INSULIN-DEPENDENT [None]
  - LYMPHOPROLIFERATIVE DISORDER [None]
  - MENINGITIS CRYPTOCOCCAL [None]
